FAERS Safety Report 13648865 (Version 2)
Quarter: 2019Q4

REPORT INFORMATION
  Report Type: Report from Study
  Country: US (occurrence: US)
  Receive Date: 20170613
  Receipt Date: 20191127
  Transmission Date: 20200122
  Serious: Yes (Hospitalization)
  Sender: FDA-Public Use
  Company Number: US-TEVA-777153USA

PATIENT
  Age: 6 Year
  Sex: Male
  Weight: 23.7 kg

DRUGS (3)
  1. INCB018424 [Suspect]
     Active Substance: RUXOLITINIB
     Indication: LEUKAEMIA
     Dosage: 50 MILLIGRAM DAILY; REGIMEN 1
     Route: 048
     Dates: start: 20170118, end: 20170228
  2. INCB018424 [Suspect]
     Active Substance: RUXOLITINIB
     Dosage: 50 MILLIGRAM DAILY; REGIMEN 2
     Route: 048
     Dates: start: 20170327
  3. VINCRISTINE [Suspect]
     Active Substance: VINCRISTINE
     Indication: LEUKAEMIA
     Route: 042
     Dates: start: 20170301

REACTIONS (2)
  - Lymphatic disorder [Recovered/Resolved]
  - Blood disorder [Recovered/Resolved]

NARRATIVE: CASE EVENT DATE: 20170309
